FAERS Safety Report 13427624 (Version 1)
Quarter: 2017Q2

REPORT INFORMATION
  Report Type: Spontaneous
  Country: US (occurrence: US)
  Receive Date: 20170411
  Receipt Date: 20170411
  Transmission Date: 20170830
  Serious: Yes (Other)
  Sender: FDA-Public Use
  Company Number: US-SA-2017SA061271

PATIENT
  Age: 58 Year
  Sex: Female
  Weight: 68.03 kg

DRUGS (8)
  1. TUMS [Concomitant]
     Active Substance: CALCIUM CARBONATE
     Dosage: 1 EACH AS DIRECTED
     Dates: start: 20101201
  2. FLONASE [Concomitant]
     Active Substance: FLUTICASONE PROPIONATE
     Dosage: 1 EACH AS DIRECTED
     Dates: start: 20101201
  3. FABRAZYME [Suspect]
     Active Substance: AGALSIDASE BETA
     Indication: FABRY^S DISEASE
     Route: 042
  4. FISH OIL [Concomitant]
     Active Substance: FISH OIL
     Route: 048
     Dates: start: 20151114
  5. VITAMIN D3 [Concomitant]
     Active Substance: CHOLECALCIFEROL
     Dosage: DOSE:3000 UNIT(S)
     Route: 048
     Dates: start: 20150119
  6. FABRAZYME [Suspect]
     Active Substance: AGALSIDASE BETA
     Indication: LIPIDOSIS
     Route: 042
  7. ASPIRIN. [Concomitant]
     Active Substance: ASPIRIN
     Route: 048
     Dates: start: 20170321
  8. FLUTICASONE PROPIONATE. [Concomitant]
     Active Substance: FLUTICASONE PROPIONATE
     Dosage: 2 SPRAY
     Route: 055
     Dates: start: 20150119

REACTIONS (1)
  - Gallbladder disorder [Unknown]
